FAERS Safety Report 15690729 (Version 1)
Quarter: 2018Q4

REPORT INFORMATION
  Report Type: Spontaneous
  Country: US (occurrence: US)
  Receive Date: 20181205
  Receipt Date: 20181205
  Transmission Date: 20190205
  Serious: Yes (Death, Other)
  Sender: FDA-Public Use
  Company Number: US-THERAVANCE-2018-000028

PATIENT
  Age: 21 Year
  Sex: Female

DRUGS (3)
  1. VIBATIV [Suspect]
     Active Substance: TELAVANCIN HYDROCHLORIDE
     Indication: PNEUMONIA
  2. VIBATIV [Suspect]
     Active Substance: TELAVANCIN HYDROCHLORIDE
     Indication: ENDOCARDITIS
  3. VIBATIV [Suspect]
     Active Substance: TELAVANCIN HYDROCHLORIDE
     Indication: STAPHYLOCOCCAL BACTERAEMIA
     Dosage: 7.5 MG/KG, QD
     Route: 042

REACTIONS (4)
  - Respiratory failure [Fatal]
  - Off label use [Unknown]
  - Cardiac arrest [Fatal]
  - Renal failure [Fatal]
